FAERS Safety Report 11833766 (Version 5)
Quarter: 2016Q3

REPORT INFORMATION
  Report Type: Report from Study
  Country: CN (occurrence: CN)
  Receive Date: 20151214
  Receipt Date: 20160912
  Transmission Date: 20161109
  Serious: Yes (Hospitalization)
  Sender: FDA-Public Use
  Company Number: PHHY2015CN162050

PATIENT
  Age: 34 Year
  Sex: Male
  Weight: 53.5 kg

DRUGS (3)
  1. CEFPODOXIME PROXETIL. [Concomitant]
     Active Substance: CEFPODOXIME PROXETIL
     Indication: PROPHYLAXIS URINARY TRACT INFECTION
     Route: 065
  2. TACROLIMUS. [Concomitant]
     Active Substance: TACROLIMUS
     Indication: PROPHYLAXIS AGAINST TRANSPLANT REJECTION
     Dosage: 9 MG, UNK
     Route: 048
  3. MYFORTIC [Suspect]
     Active Substance: MYCOPHENOLATE SODIUM
     Indication: RENAL TRANSPLANT
     Dosage: 1080 MG, QD
     Route: 048
     Dates: start: 20151116

REACTIONS (7)
  - Red blood cells urine positive [Unknown]
  - Wound secretion [Recovered/Resolved]
  - Urinary fistula [Recovered/Resolved]
  - Alanine aminotransferase increased [Recovered/Resolved]
  - Urinary casts present [Unknown]
  - Aspartate aminotransferase increased [Recovered/Resolved]
  - White blood cells urine positive [Recovered/Resolved]

NARRATIVE: CASE EVENT DATE: 20151202
